FAERS Safety Report 5194973-X (Version None)
Quarter: 2006Q4

REPORT INFORMATION
  Report Type: 
  Country: None (occurrence: None)
  Receive Date: 20061227
  Receipt Date: 20061215
  Transmission Date: 20070319
  Serious: Yes (Congenital Anomaly)
  Sender: FDA-Public Use
  Company Number: 8020817

PATIENT
  Sex: Male
  Weight: 18.5 kg

DRUGS (7)
  1. KEPPRA [Suspect]
     Dosage: 3000 MG /D TRP
     Route: 064
     Dates: start: 20050803, end: 20060426
  2. PLAQUENIL [Concomitant]
  3. PRENATAL VITAMINS [Concomitant]
  4. FOLIC ACID [Concomitant]
  5. LEXAPRO [Concomitant]
  6. CLONAZEPAM [Concomitant]
  7. TRILEPTAL [Concomitant]

REACTIONS (3)
  - DRUG EXPOSURE DURING PREGNANCY [None]
  - MATERNAL CONDITION AFFECTING FOETUS [None]
  - VENTRICULAR SEPTAL DEFECT [None]
